FAERS Safety Report 20050611 (Version 1)
Quarter: 2021Q4

REPORT INFORMATION
  Report Type: Spontaneous
  Country: FR (occurrence: FR)
  Receive Date: 20211109
  Receipt Date: 20211109
  Transmission Date: 20220303
  Serious: Yes (Hospitalization, Disabling, Congenital Anomaly, Other)
  Sender: FDA-Public Use
  Company Number: FR-ABBVIE-21K-056-4145765-00

PATIENT
  Sex: Male

DRUGS (5)
  1. VALPROATE SODIUM [Suspect]
     Active Substance: VALPROATE SODIUM
     Indication: Maternal exposure timing unspecified
     Route: 064
  2. LAMOTRIGINE [Suspect]
     Active Substance: LAMOTRIGINE
     Indication: Maternal exposure timing unspecified
     Route: 064
  3. OXCARBAZEPINE [Suspect]
     Active Substance: OXCARBAZEPINE
     Indication: Maternal exposure timing unspecified
     Route: 064
  4. CLOBAZAM [Suspect]
     Active Substance: CLOBAZAM
     Indication: Maternal exposure timing unspecified
     Route: 064
  5. FOLIC ACID [Concomitant]
     Active Substance: FOLIC ACID
     Indication: Maternal exposure timing unspecified

REACTIONS (60)
  - Food intolerance [Not Recovered/Not Resolved]
  - Dehydration [Not Recovered/Not Resolved]
  - Dysuria [Not Recovered/Not Resolved]
  - Balanoposthitis [Not Recovered/Not Resolved]
  - Gastroenteritis [Not Recovered/Not Resolved]
  - Hypotonia neonatal [Not Recovered/Not Resolved]
  - Erythrosis [Not Recovered/Not Resolved]
  - Ecchymosis [Not Recovered/Not Resolved]
  - Conjunctivitis [Not Recovered/Not Resolved]
  - Urinary tract infection [Not Recovered/Not Resolved]
  - Hypotonia [Unknown]
  - Motor developmental delay [Not Recovered/Not Resolved]
  - Diarrhoea [Not Recovered/Not Resolved]
  - Speech disorder developmental [Unknown]
  - Intellectual disability [Unknown]
  - Astigmatism [Unknown]
  - Strabismus [Unknown]
  - Myopia [Unknown]
  - Psychomotor hyperactivity [Unknown]
  - Behaviour disorder [Unknown]
  - Kyphosis [Unknown]
  - Dysmorphism [Unknown]
  - Prosthesis implantation [Unknown]
  - Atrial septal defect [Unknown]
  - Right ventricular failure [Unknown]
  - Pulmonary artery dilatation [Unknown]
  - Disturbance in attention [Not Recovered/Not Resolved]
  - Hallucination [Unknown]
  - Anxiety disorder [Not Recovered/Not Resolved]
  - Testicular retraction [Unknown]
  - Sleep disorder [Unknown]
  - Enuresis [Unknown]
  - Seizure [Unknown]
  - Cyanosis [Unknown]
  - Fine motor skill dysfunction [Unknown]
  - Motor dysfunction [Unknown]
  - Balance disorder [Unknown]
  - Coordination abnormal [Unknown]
  - Autism spectrum disorder [Not Recovered/Not Resolved]
  - Otitis media acute [Unknown]
  - Ear infection [Unknown]
  - Rhinitis [Unknown]
  - Vomiting [Unknown]
  - Viral infection [Unknown]
  - Motor developmental delay [Unknown]
  - Speech disorder developmental [Unknown]
  - Fine motor delay [Unknown]
  - Developmental delay [Unknown]
  - Developmental coordination disorder [Unknown]
  - Motor dysfunction [Unknown]
  - Autism spectrum disorder [Unknown]
  - Cardiac murmur [Unknown]
  - Epilepsy [Unknown]
  - Cognitive disorder [Not Recovered/Not Resolved]
  - Foetal anticonvulsant syndrome [Not Recovered/Not Resolved]
  - Psychomotor retardation [Unknown]
  - Muscle tone disorder [Unknown]
  - Bradykinesia [Unknown]
  - Educational problem [Not Recovered/Not Resolved]
  - Foetal exposure during pregnancy [Unknown]

NARRATIVE: CASE EVENT DATE: 20090916
